FAERS Safety Report 24730967 (Version 1)
Quarter: 2024Q4

REPORT INFORMATION
  Report Type: Spontaneous
  Country: NL (occurrence: NL)
  Receive Date: 20241213
  Receipt Date: 20241213
  Transmission Date: 20250115
  Serious: Yes (Other)
  Sender: AUROBINDO
  Company Number: NL-ABBVIE-5954360

PATIENT
  Age: 75 Year
  Sex: Male

DRUGS (7)
  1. RIVASTIGMINE [Suspect]
     Active Substance: RIVASTIGMINE
     Indication: Product used for unknown indication
     Dosage: 9.5 MILLIGRAM, ONCE A DAY [FREQUENCY TEXT: PER 24 HOURS, PATCHES]
     Route: 065
  2. CARBIDOPA\LEVODOPA [Suspect]
     Active Substance: CARBIDOPA\LEVODOPA
     Indication: Parkinson^s disease
     Dosage: 100 MILLILITER [LAST ADMIN DATE- AUG 2024REMAINS AT 24 HOURS]
     Dates: start: 20240802
  3. CARBIDOPA\LEVODOPA [Suspect]
     Active Substance: CARBIDOPA\LEVODOPA
     Dosage: UNK [MD:6.5ML, CD:4.0ML/H, ED:1.0ML, GOES TO 24 HOURS]
     Dates: start: 20240816, end: 20240913
  4. CARBIDOPA\LEVODOPA [Suspect]
     Active Substance: CARBIDOPA\LEVODOPA
     Dosage: UNK [MD:6.5ML, CD:4.9ML/H, ED:1.50ML, CND:2.4ML/HGOES TO 24 HOURS]
     Dates: start: 20240913, end: 20240923
  5. CARBIDOPA\LEVODOPA [Suspect]
     Active Substance: CARBIDOPA\LEVODOPA
     Dosage: UNK [MD:6.5ML, CD:4.8ML/H, ED:1.50ML, CND:2.5ML/H,END:1.5MLGOES TO 24 HOURS]
     Dates: start: 20240923
  6. POLYETHYLENE GLYCOLS [Concomitant]
     Active Substance: POLYETHYLENE GLYCOLS
     Indication: Gastrointestinal motility disorder
     Dosage: UNK
     Route: 065
     Dates: start: 20240909
  7. PRAMIPEXOLE [Concomitant]
     Active Substance: PRAMIPEXOLE\PRAMIPEXOLE DIHYDROCHLORIDE
     Indication: Affective disorder
     Dosage: 0.38 MILLIGRAM, ONCE A DAY
     Route: 065

REACTIONS (20)
  - Dystonia [Recovering/Resolving]
  - Pneumonia [Recovered/Resolved]
  - Blister [Not Recovered/Not Resolved]
  - Dermatitis contact [Not Recovered/Not Resolved]
  - Dyskinesia [Recovered/Resolved]
  - Fatigue [Not Recovered/Not Resolved]
  - Freezing phenomenon [Recovered/Resolved]
  - Gait disturbance [Not Recovered/Not Resolved]
  - Hyperkinesia [Not Recovered/Not Resolved]
  - Herpes zoster [Not Recovered/Not Resolved]
  - Joint stiffness [Not Recovered/Not Resolved]
  - Lung disorder [Not Recovered/Not Resolved]
  - Muscle rigidity [Not Recovered/Not Resolved]
  - Memory impairment [Not Recovered/Not Resolved]
  - Movement disorder [Not Recovered/Not Resolved]
  - On and off phenomenon [Not Recovered/Not Resolved]
  - Paraesthesia [Not Recovered/Not Resolved]
  - Somnolence [Not Recovered/Not Resolved]
  - Stoma site reaction [Recovered/Resolved]
  - Drug ineffective [Not Recovered/Not Resolved]

NARRATIVE: CASE EVENT DATE: 20240101
